FAERS Safety Report 5800942-6 (Version None)
Quarter: 2008Q3

REPORT INFORMATION
  Report Type: 
  Country: None (occurrence: None)
  Receive Date: 20080703
  Receipt Date: 20080627
  Transmission Date: 20090109
  Serious: Yes (Death, Hospitalization)
  Sender: FDA-Public Use
  Company Number: US-BOEHRINGER INGELHEIM GMBH, GERMANY-2008-BP-09970RO

PATIENT
  Age: 23 Year
  Sex: Male

DRUGS (13)
  1. CYCLOPHOSPHAMIDE [Suspect]
     Indication: BONE MARROW CONDITIONING REGIMEN
  2. METHOTREXATE [Suspect]
     Indication: PROPHYLAXIS AGAINST GRAFT VERSUS HOST DISEASE
  3. PREDNISONE 50MG TAB [Suspect]
     Indication: IMMUNOSUPPRESSION
  4. TACROLIMUS [Suspect]
     Indication: PROPHYLAXIS AGAINST GRAFT VERSUS HOST DISEASE
  5. TACROLIMUS [Suspect]
     Indication: IMMUNOSUPPRESSION
  6. BUSULFAN [Suspect]
     Indication: BONE MARROW CONDITIONING REGIMEN
  7. VALGANCICLOVIR HCL [Concomitant]
     Indication: ANTIVIRAL PROPHYLAXIS
  8. VALGANCICLOVIR HCL [Concomitant]
     Indication: CYTOMEGALOVIRUS INFECTION
  9. DEFIBROTIDE [Concomitant]
     Route: 042
  10. NEUPOGEN [Concomitant]
     Indication: LEUKOPENIA
  11. NEUPOGEN [Concomitant]
     Indication: THROMBOCYTOPENIA
  12. PLT TRANSFUSIONS [Concomitant]
     Indication: LEUKOPENIA
  13. PLT TRANSFUSIONS [Concomitant]
     Indication: THROMBOCYTOPENIA

REACTIONS (18)
  - ASCITES [None]
  - CYTOMEGALOVIRUS INFECTION [None]
  - DIARRHOEA [None]
  - ENCEPHALOPATHY [None]
  - ENTEROCOCCAL INFECTION [None]
  - HEPATIC ARTERY THROMBOSIS [None]
  - HEPATIC FAILURE [None]
  - INFECTION [None]
  - JAUNDICE [None]
  - LEUKOPENIA [None]
  - LIVER ABSCESS [None]
  - LIVER FUNCTION TEST ABNORMAL [None]
  - NAUSEA [None]
  - PANCYTOPENIA [None]
  - RENAL FAILURE [None]
  - THROMBOCYTOPENIA [None]
  - VENOOCCLUSIVE LIVER DISEASE [None]
  - VOMITING [None]
